FAERS Safety Report 24346817 (Version 1)
Quarter: 2024Q3

REPORT INFORMATION
  Report Type: Spontaneous
  Country: PL (occurrence: PL)
  Receive Date: 20240921
  Receipt Date: 20240921
  Transmission Date: 20241016
  Serious: Yes (Death)
  Sender: AMGEN
  Company Number: PL-AMGEN-POLSP2024186565

PATIENT
  Age: 63 Year
  Sex: Female

DRUGS (8)
  1. BLINCYTO [Suspect]
     Active Substance: BLINATUMOMAB
     Indication: B-cell type acute leukaemia
     Dosage: 9 MICROGRAM, QD, ON DAYS 1-7
     Route: 065
     Dates: start: 202201
  2. BLINCYTO [Suspect]
     Active Substance: BLINATUMOMAB
     Dosage: 28 MICROGRAM, QD, ON DAYS 8-28
     Route: 065
     Dates: start: 202201
  3. CYTARABINE [Concomitant]
     Active Substance: CYTARABINE
     Indication: B-cell type acute leukaemia
     Dosage: 100 MILLIGRAM/SQ. METER
     Route: 065
  4. FLUDARABINE [Concomitant]
     Active Substance: FLUDARABINE PHOSPHATE
     Indication: B-cell type acute leukaemia
     Dosage: 15 MILLIGRAM/SQ. METER
     Route: 065
  5. FLUDARABINE [Concomitant]
     Active Substance: FLUDARABINE PHOSPHATE
     Dosage: 81 MILLIGRAM
     Route: 042
  6. MITOXANTRONE [Concomitant]
     Active Substance: MITOXANTRONE HYDROCHLORIDE
     Indication: B-cell type acute leukaemia
     Dosage: 10 MILLIGRAM/SQ. METER
  7. THYMOGLOBULIN [Concomitant]
     Active Substance: LAPINE T-LYMPHOCYTE IMMUNE GLOBULIN
     Indication: B-cell type acute leukaemia
     Dosage: 50 MILLIGRAM
     Route: 042
  8. THYMOGLOBULIN [Concomitant]
     Active Substance: LAPINE T-LYMPHOCYTE IMMUNE GLOBULIN
     Dosage: 75 MILLIGRAM
     Route: 042

REACTIONS (1)
  - Lineage switch leukaemia [Fatal]

NARRATIVE: CASE EVENT DATE: 20220501
